FAERS Safety Report 16375863 (Version 2)
Quarter: 2019Q2

REPORT INFORMATION
  Report Type: Spontaneous
  Country: JP (occurrence: JP)
  Receive Date: 20190531
  Receipt Date: 20190603
  Transmission Date: 20190711
  Serious: Yes (Hospitalization)
  Sender: FDA-Public Use
  Company Number: JP-BEH-2019102904

PATIENT
  Sex: Male

DRUGS (26)
  1. PENTASA [Concomitant]
     Active Substance: MESALAMINE
     Indication: CROHN^S DISEASE
  2. IDELVION [Suspect]
     Active Substance: COAGULATION FACTOR IX RECOMBINANT HUMAN
     Dosage: 3000 IU, TOT
     Route: 042
     Dates: start: 20180309, end: 20180309
  3. IDELVION [Suspect]
     Active Substance: COAGULATION FACTOR IX RECOMBINANT HUMAN
     Dosage: 1000 IU, UNK
     Route: 042
     Dates: start: 20180307, end: 20180307
  4. IDELVION [Suspect]
     Active Substance: COAGULATION FACTOR IX RECOMBINANT HUMAN
     Dosage: 2000 IU, QD FOR 7 DAYS
     Route: 042
     Dates: start: 20180307, end: 20180322
  5. IDELVION [Suspect]
     Active Substance: COAGULATION FACTOR IX RECOMBINANT HUMAN
     Dosage: 1000 IU, UNK
     Route: 042
     Dates: start: 20180318, end: 20180318
  6. IDELVION [Suspect]
     Active Substance: COAGULATION FACTOR IX RECOMBINANT HUMAN
     Dosage: 2000 IU, UNK
     Route: 042
     Dates: start: 20180312, end: 20180312
  7. IDELVION [Suspect]
     Active Substance: COAGULATION FACTOR IX RECOMBINANT HUMAN
     Dosage: 2000 IU, UNK
     Route: 042
     Dates: start: 20180322, end: 20180322
  8. ELENTAL [Concomitant]
     Active Substance: AMINO ACIDS\CARBOHYDRATES\MINERALS\SOYBEAN OIL\VITAMINS
  9. IDELVION [Suspect]
     Active Substance: COAGULATION FACTOR IX RECOMBINANT HUMAN
     Dosage: 3000 IU, TOT
     Route: 042
     Dates: start: 20180308, end: 20180308
  10. IDELVION [Suspect]
     Active Substance: COAGULATION FACTOR IX RECOMBINANT HUMAN
     Dosage: 3000 IU, TOT
     Route: 042
     Dates: start: 20180312, end: 20180312
  11. IDELVION [Suspect]
     Active Substance: COAGULATION FACTOR IX RECOMBINANT HUMAN
     Dosage: 3000 IU, TOT
     Route: 042
     Dates: start: 20180322, end: 20180322
  12. IDELVION [Suspect]
     Active Substance: COAGULATION FACTOR IX RECOMBINANT HUMAN
     Dosage: 1000 IU, UNK
     Route: 042
     Dates: start: 20180322, end: 20180322
  13. IDELVION [Suspect]
     Active Substance: COAGULATION FACTOR IX RECOMBINANT HUMAN
     Dosage: 2000 IU, UNK
     Route: 042
     Dates: start: 20180309, end: 20180309
  14. IDELVION [Suspect]
     Active Substance: COAGULATION FACTOR IX RECOMBINANT HUMAN
     Dosage: 2000 IU, UNK
     Route: 042
     Dates: start: 20180315, end: 20180315
  15. IDELVION [Suspect]
     Active Substance: COAGULATION FACTOR IX RECOMBINANT HUMAN
     Indication: GASTROINTESTINAL HAEMORRHAGE
     Dosage: 1000 IU, QD FOR 7 DAYS
     Route: 042
     Dates: start: 20180307, end: 20180322
  16. IDELVION [Suspect]
     Active Substance: COAGULATION FACTOR IX RECOMBINANT HUMAN
     Dosage: 3000 IU, TOT
     Route: 042
     Dates: start: 20180307, end: 20180307
  17. IDELVION [Suspect]
     Active Substance: COAGULATION FACTOR IX RECOMBINANT HUMAN
     Dosage: 3000 IU, TOT
     Route: 042
     Dates: start: 20180315, end: 20180315
  18. IDELVION [Suspect]
     Active Substance: COAGULATION FACTOR IX RECOMBINANT HUMAN
     Dosage: 2000 IU, UNK
     Route: 042
     Dates: start: 20180307, end: 20180307
  19. IDELVION [Suspect]
     Active Substance: COAGULATION FACTOR IX RECOMBINANT HUMAN
     Indication: FACTOR IX DEFICIENCY
     Dosage: UNK IU, UNK
     Route: 042
     Dates: start: 201712
  20. IDELVION [Suspect]
     Active Substance: COAGULATION FACTOR IX RECOMBINANT HUMAN
     Dosage: 1000 IU, UNK
     Route: 042
     Dates: start: 20180315, end: 20180315
  21. IDELVION [Suspect]
     Active Substance: COAGULATION FACTOR IX RECOMBINANT HUMAN
     Dosage: 3000 IU, TOT
     Route: 042
     Dates: start: 20180318, end: 20180318
  22. IDELVION [Suspect]
     Active Substance: COAGULATION FACTOR IX RECOMBINANT HUMAN
     Dosage: 1000 IU, UNK
     Route: 042
     Dates: start: 20180308, end: 20180308
  23. IDELVION [Suspect]
     Active Substance: COAGULATION FACTOR IX RECOMBINANT HUMAN
     Dosage: 1000 IU, UNK
     Route: 042
     Dates: start: 20180309, end: 20180309
  24. IDELVION [Suspect]
     Active Substance: COAGULATION FACTOR IX RECOMBINANT HUMAN
     Dosage: 1000 IU, UNK
     Route: 042
     Dates: start: 20180312, end: 20180312
  25. IDELVION [Suspect]
     Active Substance: COAGULATION FACTOR IX RECOMBINANT HUMAN
     Dosage: 2000 IU, UNK
     Route: 042
     Dates: start: 20180308, end: 20180308
  26. IDELVION [Suspect]
     Active Substance: COAGULATION FACTOR IX RECOMBINANT HUMAN
     Dosage: 2000 IU, UNK
     Route: 042
     Dates: start: 20180318, end: 20180318

REACTIONS (2)
  - Crohn^s disease [Recovered/Resolved]
  - Gastrointestinal haemorrhage [Recovered/Resolved]

NARRATIVE: CASE EVENT DATE: 201803
